FAERS Safety Report 18596432 (Version 1)
Quarter: 2020Q4

REPORT INFORMATION
  Report Type: Spontaneous
  Country: US (occurrence: US)
  Receive Date: 20201209
  Receipt Date: 20201209
  Transmission Date: 20210114
  Serious: Yes (Death, Hospitalization, Disabling, Other)
  Sender: FDA-Public Use
  Company Number: US-PURDUE-USA-2020-0176813

PATIENT
  Sex: Female

DRUGS (4)
  1. OXYCODONE/ ACETAMINOPHEN TABLETS [Suspect]
     Active Substance: ACETAMINOPHEN\OXYCODONE HYDROCHLORIDE
     Indication: PRODUCT USED FOR UNKNOWN INDICATION
     Dosage: UNK
     Route: 048
  2. HYDROCODONE BITARTRATE/ACETAMINOPHEN [Suspect]
     Active Substance: ACETAMINOPHEN\HYDROCODONE BITARTRATE
     Indication: PRODUCT USED FOR UNKNOWN INDICATION
     Dosage: UNK
     Route: 048
  3. OXYCONTIN [Suspect]
     Active Substance: OXYCODONE HYDROCHLORIDE
     Indication: RHEUMATOID ARTHRITIS
     Dosage: UNK
     Route: 048
  4. DILAUDID [Suspect]
     Active Substance: HYDROMORPHONE HYDROCHLORIDE
     Indication: PRODUCT USED FOR UNKNOWN INDICATION
     Dosage: UNK
     Route: 048

REACTIONS (19)
  - Death [Fatal]
  - Drug dependence [Unknown]
  - Pain in extremity [Unknown]
  - Emotional distress [Unknown]
  - Fear of death [Unknown]
  - Depression [Unknown]
  - Hallucination [Unknown]
  - Back pain [Unknown]
  - Decreased appetite [Unknown]
  - Nutritional condition abnormal [Unknown]
  - Judgement impaired [Unknown]
  - Bedridden [Unknown]
  - Drug withdrawal syndrome [Unknown]
  - Intestinal obstruction [Unknown]
  - Mental disorder [Unknown]
  - Pain [Unknown]
  - Unevaluable event [Unknown]
  - Impaired healing [Unknown]
  - Hospitalisation [Unknown]
